FAERS Safety Report 24651913 (Version 1)
Quarter: 2024Q4

REPORT INFORMATION
  Report Type: Spontaneous
  Country: JP (occurrence: JP)
  Receive Date: 20241122
  Receipt Date: 20241122
  Transmission Date: 20250115
  Serious: Yes (Death, Other)
  Sender: DR REDDYS
  Company Number: JP-RDY-LIT/JPN/24/0017334

PATIENT
  Age: 76 Year
  Sex: Female

DRUGS (2)
  1. AZACITIDINE [Suspect]
     Active Substance: AZACITIDINE
     Indication: Myelodysplastic syndrome
  2. VENETOCLAX [Suspect]
     Active Substance: VENETOCLAX
     Indication: Myelodysplastic syndrome

REACTIONS (3)
  - Multiple organ dysfunction syndrome [Fatal]
  - Scedosporium infection [Fatal]
  - Drug ineffective [Fatal]
